FAERS Safety Report 7687197-5 (Version None)
Quarter: 2011Q3

REPORT INFORMATION
  Report Type: 
  Country: None (occurrence: None)
  Receive Date: 20110816
  Receipt Date: 20110809
  Transmission Date: 20111222
  Serious: Yes (Hospitalization)
  Sender: FDA-Public Use
  Company Number: US-US-EMD SERONO, INC.-7076430

PATIENT
  Sex: Male
  Weight: 99 kg

DRUGS (3)
  1. LOTREL [Concomitant]
     Dosage: 2.5-10 MG
  2. BACLOFEN [Concomitant]
  3. REBIF [Suspect]
     Indication: PRODUCT USED FOR UNKNOWN INDICATION
     Route: 058

REACTIONS (2)
  - SEPSIS [None]
  - URINARY TRACT INFECTION [None]
